FAERS Safety Report 6077471-0 (Version None)
Quarter: 2009Q1

REPORT INFORMATION
  Report Type: 
  Country: None (occurrence: None)
  Receive Date: 20090213
  Receipt Date: 20081126
  Transmission Date: 20090719
  Serious: No
  Sender: FDA-Public Use
  Company Number: A0758331A

PATIENT
  Age: 54 Year
  Sex: Male

DRUGS (4)
  1. TREXIMET [Suspect]
     Indication: MIGRAINE
     Dosage: 500MG TWICE PER DAY
     Route: 048
     Dates: start: 20081111
  2. PREDNISONE [Concomitant]
  3. DURAGESIC-100 [Concomitant]
     Indication: PAIN
  4. PERCOCET [Concomitant]

REACTIONS (2)
  - HEADACHE [None]
  - PAIN [None]
